FAERS Safety Report 5818734-0 (Version None)
Quarter: 2008Q3

REPORT INFORMATION
  Report Type: 
  Country: None (occurrence: None)
  Receive Date: 20080717
  Receipt Date: 20080717
  Transmission Date: 20090109
  Serious: Yes (Life-Threatening, Hospitalization)
  Sender: FDA-Public Use
  Company Number: None

PATIENT
  Sex: Male
  Weight: 13.5 kg

DRUGS (6)
  1. BOTOX [Suspect]
     Indication: CEREBRAL PALSY
     Dosage: 250 UNITS INTRAMUSCU
     Route: 030
     Dates: start: 20071030
  2. BOTOX [Suspect]
     Indication: MUSCLE SPASTICITY
     Dosage: 250 UNITS INTRAMUSCU
     Route: 030
     Dates: start: 20071030
  3. BOTOX [Suspect]
     Indication: CEREBRAL PALSY
     Dosage: 250 UNITS INTRAMUSCU
     Route: 030
     Dates: start: 20080205
  4. BOTOX [Suspect]
     Indication: MUSCLE SPASTICITY
     Dosage: 250 UNITS INTRAMUSCU
     Route: 030
     Dates: start: 20080205
  5. BOTOX [Suspect]
     Indication: CEREBRAL PALSY
     Dosage: 250 UNITS INTRAMUSCU
     Route: 030
     Dates: start: 20080603
  6. BOTOX [Suspect]
     Indication: MUSCLE SPASTICITY
     Dosage: 250 UNITS INTRAMUSCU
     Route: 030
     Dates: start: 20080603

REACTIONS (9)
  - ASTHENIA [None]
  - CHOKING [None]
  - CRYING [None]
  - DYSARTHRIA [None]
  - FATIGUE [None]
  - PETIT MAL EPILEPSY [None]
  - RETCHING [None]
  - SKIN DISCOLOURATION [None]
  - SOMNOLENCE [None]
